FAERS Safety Report 9404083 (Version 1)
Quarter: 2013Q3

REPORT INFORMATION
  Report Type: Spontaneous
  Country: AU (occurrence: None)
  Receive Date: 20130711
  Receipt Date: 20130711
  Transmission Date: 20140515
  Serious: No
  Sender: FDA-Public Use
  Company Number: 2013P1011320

PATIENT
  Sex: 0

DRUGS (2)
  1. ZOLPIDEM [Suspect]
  2. ALCOHOL [Suspect]

REACTIONS (4)
  - Fall [None]
  - Dissociative disorder [None]
  - Completed suicide [None]
  - Polymedication [None]
